FAERS Safety Report 21715961 (Version 1)
Quarter: 2022Q4

REPORT INFORMATION
  Report Type: Spontaneous
  Country: US (occurrence: None)
  Receive Date: 20221211
  Receipt Date: 20221211
  Transmission Date: 20230113
  Serious: Yes (Hospitalization)
  Sender: FDA-Public Use
  Company Number: None

PATIENT
  Sex: Female

DRUGS (8)
  1. HUMIRA [Suspect]
     Active Substance: ADALIMUMAB
     Indication: Rheumatoid arthritis
     Dosage: OTHER QUANTITY : 40MG/0.4ML;?FREQUENCY : EVERY OTHER WEEK;?
     Route: 058
     Dates: start: 20210211
  2. DILTIAZEM CAP ER [Concomitant]
  3. LETROZOLE [Concomitant]
     Active Substance: LETROZOLE
  4. LEVOTHYROXIN TAB [Concomitant]
  5. MULTI VITAMIN TAB D-3 [Concomitant]
  6. SIMVASTATIN [Concomitant]
     Active Substance: SIMVASTATIN
  7. SYNTHROID TAB [Concomitant]
  8. VITAMIN D3 TAB [Concomitant]

REACTIONS (2)
  - Therapy interrupted [None]
  - Appendicitis [None]
